FAERS Safety Report 15868844 (Version 1)
Quarter: 2019Q1

REPORT INFORMATION
  Report Type: Spontaneous
  Country: US (occurrence: US)
  Receive Date: 20190125
  Receipt Date: 20190125
  Transmission Date: 20190417
  Serious: Yes (Death)
  Sender: FDA-Public Use
  Company Number: None

PATIENT
  Age: 94 Year
  Sex: Female

DRUGS (13)
  1. LOSARTAN 50MG [Concomitant]
     Active Substance: LOSARTAN
     Dates: start: 20180706
  2. DORZOLAMIDE 2% OPHTH SOLUTION [Concomitant]
     Dates: start: 20180706
  3. COMBIGAN OPHTH SOLUTION [Concomitant]
     Dates: start: 20180706
  4. VELTASSA [Suspect]
     Active Substance: PATIROMER
     Indication: HYPERKALAEMIA
     Dosage: ?          OTHER FREQUENCY:TWICE PER WEEK;?
     Route: 048
     Dates: start: 20180709, end: 20181107
  5. ASPIRIN 81MG EC [Concomitant]
     Dates: start: 20180706
  6. VITAMIN D 50,000IU [Concomitant]
     Dates: start: 20180706
  7. METOPROLOL SUCCINATE ER 25MG [Concomitant]
     Dates: start: 20180706
  8. CLOPIDOGREL [Concomitant]
     Active Substance: CLOPIDOGREL BISULFATE
     Dates: start: 20180706
  9. LEVOTHYROXINE 112MCG [Concomitant]
     Active Substance: LEVOTHYROXINE
     Dates: start: 20180706
  10. MULTIVITAMIN TABLETS [Concomitant]
     Dates: start: 20180706
  11. VITAMIN C 500MG [Concomitant]
     Dates: start: 20180706
  12. CRANBERRY CAPSULES [Concomitant]
     Dates: start: 20180706
  13. FUROSEMIDE 20MG [Concomitant]
     Active Substance: FUROSEMIDE
     Dates: start: 20180706

REACTIONS (1)
  - Inappropriate schedule of product administration [None]

NARRATIVE: CASE EVENT DATE: 20181115
